FAERS Safety Report 7671788-1 (Version None)
Quarter: 2011Q3

REPORT INFORMATION
  Report Type: 
  Country: None (occurrence: None)
  Receive Date: 20110809
  Receipt Date: 20110801
  Transmission Date: 20111222
  Serious: Yes (Death, Hospitalization, Other)
  Sender: FDA-Public Use
  Company Number: US-BAYER-2011-006774

PATIENT
  Age: 83 Year
  Sex: Female
  Weight: 50 kg

DRUGS (14)
  1. TRASYLOL [Suspect]
     Indication: AORTIC VALVE REPLACEMENT
     Dosage: 2000000 U, ONCE, IN PRIME
     Route: 042
     Dates: start: 19980319, end: 19980319
  2. TRASYLOL [Suspect]
     Indication: AORTIC SURGERY
  3. ALBUMIN (HUMAN) [Concomitant]
     Dosage: UNK
     Dates: start: 19980319
  4. GENTAMYCIN SULFATE [Concomitant]
     Dosage: 100 MG, UNK
     Dates: start: 19980319
  5. TRASYLOL [Suspect]
     Indication: CORONARY ARTERY BYPASS
  6. AMICAR [Concomitant]
     Indication: AORTIC VALVE REPLACEMENT
     Dosage: 5 G, ONCE, IN PRIME
     Route: 042
     Dates: start: 19980319, end: 19980319
  7. AMICAR [Concomitant]
     Indication: AORTIC SURGERY
  8. LASIX [Concomitant]
  9. NITROGLYCERIN [Concomitant]
     Dosage: UNK
     Dates: start: 19980319
  10. PLATELETS [Concomitant]
     Dosage: UNK
     Dates: start: 19980319
  11. HEPARIN [Concomitant]
     Dosage: UNK
     Dates: start: 19980319
  12. AMICAR [Concomitant]
     Indication: CORONARY ARTERY BYPASS
  13. LASIX [Concomitant]
     Dosage: 20 MG
     Dates: start: 19980319
  14. PROTAMINE [Concomitant]
     Dosage: UNK
     Dates: start: 19980319

REACTIONS (12)
  - INJURY [None]
  - RENAL FAILURE [None]
  - RENAL IMPAIRMENT [None]
  - DEATH [None]
  - UNEVALUABLE EVENT [None]
  - PAIN [None]
  - ANXIETY [None]
  - MULTI-ORGAN FAILURE [None]
  - RENAL INJURY [None]
  - EMOTIONAL DISTRESS [None]
  - STRESS [None]
  - FEAR [None]
